FAERS Safety Report 8967075 (Version 2)
Quarter: 2013Q3

REPORT INFORMATION
  Report Type: Spontaneous
  Country: US (occurrence: US)
  Receive Date: 20121214
  Receipt Date: 20130814
  Transmission Date: 20140515
  Serious: Yes (Other)
  Sender: FDA-Public Use
  Company Number: US-US-EMD SERONO, INC.-7182256

PATIENT
  Age: 51 Year
  Sex: Female

DRUGS (4)
  1. REBIF [Suspect]
     Indication: MULTIPLE SCLEROSIS
     Route: 058
     Dates: start: 1998, end: 2003
  2. REBIF [Suspect]
     Route: 058
     Dates: start: 2007, end: 2010
  3. REBIF [Suspect]
     Route: 058
     Dates: start: 20110524, end: 201211
  4. REBIF [Suspect]

REACTIONS (5)
  - Ocular sarcoidosis [Recovering/Resolving]
  - Uveitis [Unknown]
  - Asthma [Unknown]
  - Ocular icterus [Unknown]
  - Hypersomnia [Unknown]
